FAERS Safety Report 9894637 (Version 1)
Quarter: 2014Q1

REPORT INFORMATION
  Report Type: Spontaneous
  Country: BR (occurrence: BR)
  Receive Date: 20140213
  Receipt Date: 20140213
  Transmission Date: 20141002
  Serious: Yes (Other)
  Sender: FDA-Public Use
  Company Number: PHHY2014BR017496

PATIENT
  Sex: Male

DRUGS (4)
  1. PAMELOR [Suspect]
     Dosage: UNK
  2. LEPONEX [Suspect]
     Dosage: UNK
  3. LEPONEX [Suspect]
     Dosage: 75 MG A DAY
  4. LEPONEX [Suspect]
     Dosage: 25 MG A DAY

REACTIONS (2)
  - Syncope [Unknown]
  - Hypotension [Unknown]
